FAERS Safety Report 15786708 (Version 1)
Quarter: 2019Q1

REPORT INFORMATION
  Report Type: Spontaneous
  Country: US (occurrence: US)
  Receive Date: 20190103
  Receipt Date: 20190103
  Transmission Date: 20190417
  Serious: No
  Sender: FDA-Public Use
  Company Number: None

PATIENT
  Age: 56 Year
  Sex: Female
  Weight: 90 kg

DRUGS (1)
  1. NYSTATIN. [Suspect]
     Active Substance: NYSTATIN
     Indication: CANDIDA INFECTION
     Dosage: ?          OTHER STRENGTH:UNIT;QUANTITY:1 TABLET(S);?
     Route: 048
     Dates: start: 20181104, end: 20181217

REACTIONS (1)
  - Headache [None]

NARRATIVE: CASE EVENT DATE: 20181111
